FAERS Safety Report 4521378-4 (Version None)
Quarter: 2004Q4

REPORT INFORMATION
  Report Type: 
  Country: None (occurrence: None)
  Receive Date: 20041208
  Receipt Date: 20040903
  Transmission Date: 20050328
  Serious: Yes (Life-Threatening)
  Sender: FDA-Public Use
  Company Number: US-MERCK-0409USA00401

PATIENT
  Age: 34 Year
  Sex: Male
  Weight: 67 kg

DRUGS (4)
  1. ZETIA [Suspect]
     Indication: HYPERLIPIDAEMIA
     Route: 048
     Dates: start: 20040602, end: 20040827
  2. VITAMINS (UNSPECIFIED) [Concomitant]
     Route: 065
  3. ASPIRIN [Concomitant]
     Route: 065
  4. ALLEGRA-D [Concomitant]
     Route: 065

REACTIONS (2)
  - NECK PAIN [None]
  - RHABDOMYOLYSIS [None]
